FAERS Safety Report 18904266 (Version 2)
Quarter: 2021Q1

REPORT INFORMATION
  Report Type: Spontaneous
  Country: US (occurrence: US)
  Receive Date: 20210217
  Receipt Date: 20210319
  Transmission Date: 20210420
  Serious: No
  Sender: FDA-Public Use
  Company Number: US-ASTRAZENECA-2021A020924

PATIENT
  Sex: Male
  Weight: 54.4 kg

DRUGS (6)
  1. XOPINEX [Concomitant]
  2. SYMBICORT [Suspect]
     Active Substance: BUDESONIDE\FORMOTEROL FUMARATE DIHYDRATE
     Indication: EMPHYSEMA
     Dosage: 80/4.5 MCG 2 PUFFS TWICE A DAY
     Route: 055
  3. SYMBICORT [Suspect]
     Active Substance: BUDESONIDE\FORMOTEROL FUMARATE DIHYDRATE
     Indication: CHRONIC OBSTRUCTIVE PULMONARY DISEASE
     Dosage: 160/4.5 MCG 2 PUFFS TWICE A DAY
     Route: 055
  4. SYMBICORT [Suspect]
     Active Substance: BUDESONIDE\FORMOTEROL FUMARATE DIHYDRATE
     Indication: EMPHYSEMA
     Dosage: 160/4.5 MCG 2 PUFFS TWICE A DAY
     Route: 055
  5. SPIRIVA [Concomitant]
     Active Substance: TIOTROPIUM BROMIDE MONOHYDRATE
  6. SYMBICORT [Suspect]
     Active Substance: BUDESONIDE\FORMOTEROL FUMARATE DIHYDRATE
     Indication: CHRONIC OBSTRUCTIVE PULMONARY DISEASE
     Dosage: 80/4.5 MCG 2 PUFFS TWICE A DAY
     Route: 055

REACTIONS (8)
  - Product use issue [Recovered/Resolved]
  - Intentional product misuse [Recovered/Resolved]
  - Drug delivery system malfunction [Unknown]
  - Device failure [Not Recovered/Not Resolved]
  - Incorrect dose administered by device [Not Recovered/Not Resolved]
  - Product dose omission issue [Recovered/Resolved]
  - Weight decreased [Not Recovered/Not Resolved]
  - Intentional device misuse [Not Recovered/Not Resolved]
